FAERS Safety Report 5205291-5 (Version None)
Quarter: 2007Q1

REPORT INFORMATION
  Report Type: 
  Country: None (occurrence: None)
  Receive Date: 20070108
  Receipt Date: 20061228
  Transmission Date: 20070707
  Serious: Yes (Hospitalization)
  Sender: FDA-Public Use
  Company Number: 2006P1000451

PATIENT
  Age: 70 Year
  Sex: Female
  Weight: 65 kg

DRUGS (10)
  1. RETEPLASE (RETEPLASE) [Suspect]
     Indication: ACUTE MYOCARDIAL INFARCTION
     Dosage: IV
     Route: 042
     Dates: start: 20060915
  2. ABCIXIMAB (ABCIXIMAB) [Suspect]
     Indication: ACUTE MYOCARDIAL INFARCTION
     Dosage: IV
     Route: 042
     Dates: start: 20060915
  3. PERINDOPRIL ERBUMINE [Concomitant]
  4. ACETYLSALICYLATE CALCIUM [Concomitant]
  5. CLOPIDOGREL [Concomitant]
  6. CRESTOR [Concomitant]
  7. FUROSEMIDE [Concomitant]
  8. PANTOPRAZOLE SODIUM [Concomitant]
  9. METOPROLOL SUCCINATE [Concomitant]
  10. OXAZEPAM [Concomitant]

REACTIONS (8)
  - CHEST PAIN [None]
  - CIRCULATORY COLLAPSE [None]
  - CONDITION AGGRAVATED [None]
  - DIZZINESS [None]
  - HYPERTENSION [None]
  - MALAISE [None]
  - NAUSEA [None]
  - PALPITATIONS [None]
